FAERS Safety Report 21018205 (Version 1)
Quarter: 2022Q2

REPORT INFORMATION
  Report Type: Spontaneous
  Country: US (occurrence: None)
  Receive Date: 20220628
  Receipt Date: 20220628
  Transmission Date: 20220721
  Serious: Yes (Disabling)
  Sender: FDA-Public Use
  Company Number: None

PATIENT
  Age: 70 Year
  Sex: Female
  Weight: 47.25 kg

DRUGS (6)
  1. CROMOLYN SODIUM [Suspect]
     Active Substance: CROMOLYN SODIUM
     Indication: Mast cell activation syndrome
     Dosage: OTHER QUANTITY : 96 AMPULES (5 ML EACH;?FREQUENCY : 4 TIMES A DAY;?
     Route: 048
     Dates: start: 20220623, end: 20220624
  2. ALENDRONATE SODIUM [Concomitant]
     Active Substance: ALENDRONATE SODIUM
  3. Betamethasone do 0.05% cream [Concomitant]
  4. ALLEGRA [Concomitant]
     Active Substance: FEXOFENADINE HYDROCHLORIDE
  5. ZYRTEC [Concomitant]
     Active Substance: CETIRIZINE HYDROCHLORIDE
  6. NASALCROM [Concomitant]
     Active Substance: CROMOLYN SODIUM

REACTIONS (6)
  - Incorrect dose administered [None]
  - Rash pruritic [None]
  - Cough [None]
  - Nasal congestion [None]
  - Illness [None]
  - Drug ineffective [None]

NARRATIVE: CASE EVENT DATE: 20220625
